FAERS Safety Report 24573049 (Version 12)
Quarter: 2025Q4

REPORT INFORMATION
  Report Type: Report from Study
  Country: CN (occurrence: CN)
  Receive Date: 20241101
  Receipt Date: 20251201
  Transmission Date: 20260118
  Serious: Yes (Other)
  Sender: NOVO NORDISK
  Company Number: CN-NOVOPROD-1306952

PATIENT
  Sex: Male

DRUGS (17)
  1. NOVOEIGHT [Suspect]
     Active Substance: ANTIHEMOPHILIC FACTOR, HUMAN RECOMBINANT
     Indication: Factor VIII deficiency
     Dosage: 3000 IU, QD
     Route: 042
  2. NOVOEIGHT [Suspect]
     Active Substance: ANTIHEMOPHILIC FACTOR, HUMAN RECOMBINANT
     Dosage: 2000 IU, BID
     Route: 042
  3. NOVOEIGHT [Suspect]
     Active Substance: ANTIHEMOPHILIC FACTOR, HUMAN RECOMBINANT
     Dosage: 3000 IU, QD
     Route: 042
     Dates: start: 20251117
  4. NOVOEIGHT [Suspect]
     Active Substance: ANTIHEMOPHILIC FACTOR, HUMAN RECOMBINANT
     Dosage: 3000 IU, QD (USED FOR 6 DAYS)
     Route: 042
     Dates: start: 20250923
  5. NOVOEIGHT [Suspect]
     Active Substance: ANTIHEMOPHILIC FACTOR, HUMAN RECOMBINANT
     Dosage: 2000 IU, QD
     Route: 042
     Dates: start: 20241122
  6. NOVOEIGHT [Suspect]
     Active Substance: ANTIHEMOPHILIC FACTOR, HUMAN RECOMBINANT
     Dosage: 2000 IU, QD(INTRAVENOUS FOR 6 DAYS )
     Route: 042
     Dates: start: 20250113
  7. NOVOEIGHT [Suspect]
     Active Substance: ANTIHEMOPHILIC FACTOR, HUMAN RECOMBINANT
     Dosage: 2000 IU, QD (FOR SIX DAYS)
     Route: 042
     Dates: start: 20250123
  8. NOVOEIGHT [Suspect]
     Active Substance: ANTIHEMOPHILIC FACTOR, HUMAN RECOMBINANT
     Dosage: 2000 IU, QD (FOR SIX DAYS)
     Route: 042
     Dates: start: 20250203
  9. NOVOEIGHT [Suspect]
     Active Substance: ANTIHEMOPHILIC FACTOR, HUMAN RECOMBINANT
     Dosage: 2000 IU, QD (FOR SIX DAYS)
     Route: 042
     Dates: start: 20250210
  10. NOVOEIGHT [Suspect]
     Active Substance: ANTIHEMOPHILIC FACTOR, HUMAN RECOMBINANT
     Dosage: 2000 IU, QD (FOR SIX DAYS)
     Route: 042
     Dates: start: 20250218
  11. NOVOEIGHT [Suspect]
     Active Substance: ANTIHEMOPHILIC FACTOR, HUMAN RECOMBINANT
     Dosage: 2000 IU, QD (USED FOR 5 DAYS)
     Route: 042
     Dates: start: 20250904
  12. NOVOEIGHT [Suspect]
     Active Substance: ANTIHEMOPHILIC FACTOR, HUMAN RECOMBINANT
     Dosage: 2000 IU, QD (USED FOR 6 DAYS)
     Route: 042
  13. NOVOEIGHT [Suspect]
     Active Substance: ANTIHEMOPHILIC FACTOR, HUMAN RECOMBINANT
     Dosage: 3000 IU, QD (USED FOR 6 DAYS)
     Route: 042
     Dates: start: 20250919
  14. NOVOEIGHT [Suspect]
     Active Substance: ANTIHEMOPHILIC FACTOR, HUMAN RECOMBINANT
     Dosage: 3000 IU, QD (USED FOR 6 DAYS)
     Route: 042
     Dates: start: 20250921
  15. NOVOEIGHT [Suspect]
     Active Substance: ANTIHEMOPHILIC FACTOR, HUMAN RECOMBINANT
     Dosage: 500 IU PER PIECE) EACH TIME, USED FOR 2 DAYS
     Route: 042
     Dates: start: 20250821
  16. NOVOEIGHT [Suspect]
     Active Substance: ANTIHEMOPHILIC FACTOR, HUMAN RECOMBINANT
     Indication: Factor VIII deficiency
     Dosage: UNK
     Route: 042
  17. NOVOEIGHT [Suspect]
     Active Substance: ANTIHEMOPHILIC FACTOR, HUMAN RECOMBINANT
     Dosage: 5 PIECES (500 IU PER PIECE) EACH TIME, USED FOR 2 DAYS
     Route: 042

REACTIONS (11)
  - Haemarthrosis [Unknown]
  - Haemarthrosis [Unknown]
  - Haemophilic arthropathy [Unknown]
  - Haemarthrosis [Unknown]
  - Haemophilic arthropathy [Unknown]
  - Gingival disorder [Unknown]
  - Haemophilic arthropathy [Unknown]
  - Gingival disorder [Unknown]
  - Muscle haemorrhage [Unknown]
  - Gingival bleeding [Unknown]
  - Haematoma muscle [Unknown]
